FAERS Safety Report 13531500 (Version 1)
Quarter: 2017Q2

REPORT INFORMATION
  Report Type: Spontaneous
  Country: US (occurrence: US)
  Receive Date: 20170510
  Receipt Date: 20170510
  Transmission Date: 20170830
  Serious: Yes (Other)
  Sender: FDA-Public Use
  Company Number: US-ROCHE-1930120

PATIENT
  Age: 55 Year
  Sex: Male

DRUGS (2)
  1. ZELBORAF [Suspect]
     Active Substance: VEMURAFENIB
     Indication: MALIGNANT MELANOMA
     Route: 048
  2. COTELLIC [Suspect]
     Active Substance: COBIMETINIB
     Indication: MALIGNANT MELANOMA
     Dosage: 2 TABLETS ORAL ONCE A DAY FOR 21 DAYS THEN 1 WEEK OFF THEN REPEAT
     Route: 048

REACTIONS (3)
  - Cerebral haemorrhage [Unknown]
  - Metastases to central nervous system [Unknown]
  - Metastases to lung [Unknown]
